FAERS Safety Report 8054740-6 (Version None)
Quarter: 2012Q1

REPORT INFORMATION
  Report Type: 
  Country: None (occurrence: None)
  Receive Date: 20120119
  Receipt Date: 20120109
  Transmission Date: 20120608
  Serious: Yes (Life-Threatening, Hospitalization)
  Sender: FDA-Public Use
  Company Number: DE-VERTEX PHARMACEUTICALS INC.-000000000000000069

PATIENT
  Sex: Female
  Weight: 67 kg

DRUGS (6)
  1. LEVOTHYROXINE SODIUM [Concomitant]
     Indication: HYPOTHYROIDISM
     Dosage: DOSAGE FORM: UNKNOWN
     Route: 048
  2. PEGASYS [Concomitant]
     Indication: HEPATITIS C
     Dosage: DOSAGE FORM: UNKNOWN
     Route: 058
  3. COPEGUS [Concomitant]
     Indication: HEPATITIS C
     Dosage: DOSAGE FORM: UNKNOWN
     Route: 048
     Dates: start: 20111202
  4. NOVORAPID [Concomitant]
     Dosage: DOSAGE FORM: UNKNOWN
  5. LEVEMIR [Concomitant]
     Dosage: DOSAGE FORM: UNKNOWN
     Route: 058
  6. INCIVO (TELAPREVIR) [Suspect]
     Indication: HEPATITIS C
     Dosage: DOSAGE FORM: TABLET
     Route: 048
     Dates: start: 20111202

REACTIONS (3)
  - HYPERGLYCAEMIA [None]
  - NAUSEA [None]
  - VOMITING [None]
